FAERS Safety Report 11906726 (Version 1)
Quarter: 2016Q1

REPORT INFORMATION
  Report Type: Spontaneous
  Country: US (occurrence: None)
  Receive Date: 20160108
  Receipt Date: 20160108
  Transmission Date: 20160526
  Serious: No
  Sender: FDA-Public Use
  Company Number: None

PATIENT
  Age: 38 Year
  Sex: Female
  Weight: 79.83 kg

DRUGS (32)
  1. DYMISTA [Concomitant]
     Active Substance: AZELASTINE HYDROCHLORIDE\FLUTICASONE PROPIONATE
  2. ALBUTEROL. [Concomitant]
     Active Substance: ALBUTEROL
  3. MAGNESIUM [Concomitant]
     Active Substance: MAGNESIUM
  4. OXYMORPHONE TAB HCL 5 MG TABLETS COREPHARMA [Suspect]
     Active Substance: OXYMORPHONE HYDROCHLORIDE
     Indication: PAIN
     Dosage: 1 TABLET Q 6 HOURS PRN PAIN
     Route: 048
     Dates: start: 20151213, end: 20160107
  5. TIZANIDINE. [Concomitant]
     Active Substance: TIZANIDINE
  6. CLONAZEPAM. [Concomitant]
     Active Substance: CLONAZEPAM
  7. IBUPROFEN. [Concomitant]
     Active Substance: IBUPROFEN
  8. TYLENOL [Concomitant]
     Active Substance: ACETAMINOPHEN
  9. VITAMIN D3 [Concomitant]
     Active Substance: CHOLECALCIFEROL
  10. WELLBUTRIN [Concomitant]
     Active Substance: BUPROPION HYDROCHLORIDE
  11. ADDERALL [Concomitant]
     Active Substance: AMPHETAMINE ASPARTATE\AMPHETAMINE SULFATE\DEXTROAMPHETAMINE SACCHARATE\DEXTROAMPHETAMINE SULFATE
  12. MELATONIN [Concomitant]
     Active Substance: MELATONIN
  13. DOXYLAMINE [Concomitant]
     Active Substance: DOXYLAMINE
  14. KETOFIN EYE DROPS [Concomitant]
  15. ZOLMITRIPTAN. [Concomitant]
     Active Substance: ZOLMITRIPTAN
  16. HYDROXYZINE [Concomitant]
     Active Substance: HYDROXYZINE\HYDROXYZINE HYDROCHLORIDE
  17. PULMICORT TURBUHALER [Concomitant]
     Active Substance: BUDESONIDE
  18. ZOLPIDEM [Concomitant]
     Active Substance: ZOLPIDEM\ZOLPIDEM TARTRATE
  19. VITAMIN B COMPLEX [Concomitant]
     Active Substance: CYANOCOBALAMIN\DEXPANTHENOL\NIACINAMIDE\PYRIDOXINE HYDROCHLORIDE\RIBOFLAVIN 5^-PHOSPHATE SODIUM\THIAMINE HYDROCHLORIDE\VITAMIN B COMPLEX
  20. B TABS [Concomitant]
  21. PROMETHAZINE [Concomitant]
     Active Substance: PROMETHAZINE\PROMETHAZINE HYDROCHLORIDE
  22. ADVAIR HFA [Concomitant]
     Active Substance: FLUTICASONE PROPIONATE\SALMETEROL XINAFOATE
  23. MECLIZINE [Concomitant]
     Active Substance: MECLIZINE HYDROCHLORIDE
  24. OXYMORPHONE TAB HCL 5 MG TABLETS COREPHARMA [Suspect]
     Active Substance: OXYMORPHONE HYDROCHLORIDE
     Indication: NERVE INJURY
     Dosage: 1 TABLET Q 6 HOURS PRN PAIN
     Route: 048
     Dates: start: 20151213, end: 20160107
  25. PROTONIX [Concomitant]
     Active Substance: PANTOPRAZOLE SODIUM
  26. IPATROPIUM [Concomitant]
  27. SIMETHICONE (DIMETHICONE) [Concomitant]
     Active Substance: DIMETHICONE
  28. CHLORTRIMATON [Concomitant]
  29. OMEPRAZOLE. [Concomitant]
     Active Substance: OMEPRAZOLE
  30. BENADRYL [Concomitant]
     Active Substance: DIPHENHYDRAMINE HYDROCHLORIDE
  31. ZANTAC [Concomitant]
     Active Substance: RANITIDINE HYDROCHLORIDE
  32. CORTISONE [Concomitant]
     Active Substance: CORTISONE\HYDROCORTISONE

REACTIONS (9)
  - Migraine [None]
  - Constipation [None]
  - Feeling abnormal [None]
  - Drug effect decreased [None]
  - Muscle spasms [None]
  - Product substitution issue [None]
  - Pruritus [None]
  - Abdominal discomfort [None]
  - Nausea [None]

NARRATIVE: CASE EVENT DATE: 20151213
